FAERS Safety Report 14565357 (Version 2)
Quarter: 2018Q2

REPORT INFORMATION
  Report Type: Spontaneous
  Country: PL (occurrence: PL)
  Receive Date: 20180223
  Receipt Date: 20180530
  Transmission Date: 20180711
  Serious: Yes (Hospitalization, Other)
  Sender: FDA-Public Use
  Company Number: PL-BRISTOL-MYERS SQUIBB COMPANY-BMS-2018-015701

PATIENT
  Age: 70 Year

DRUGS (1)
  1. NIVOLUMAB [Suspect]
     Active Substance: NIVOLUMAB
     Indication: SQUAMOUS CELL CARCINOMA OF LUNG
     Dosage: 12 INFUSIONS
     Route: 042
     Dates: start: 20160121, end: 20160624

REACTIONS (6)
  - Dyspnoea [Unknown]
  - Pneumonia [Unknown]
  - General physical health deterioration [Unknown]
  - Cough [Unknown]
  - Candida infection [Unknown]
  - Pyrexia [Unknown]

NARRATIVE: CASE EVENT DATE: 20160708
